FAERS Safety Report 9200500 (Version 1)
Quarter: 2013Q1

REPORT INFORMATION
  Report Type: Spontaneous
  Country: SE (occurrence: SE)
  Receive Date: 20130329
  Receipt Date: 20130329
  Transmission Date: 20140127
  Serious: Yes (Hospitalization)
  Sender: FDA-Public Use
  Company Number: SE-PFIZER INC-2005068857

PATIENT
  Age: 11 Year
  Sex: Female

DRUGS (3)
  1. IPREN [Suspect]
     Indication: HEADACHE
     Dosage: 400 MG, 3X/DAY
     Route: 048
     Dates: start: 20031224, end: 20040115
  2. KAVEPENIN [Concomitant]
     Dosage: UNSPECIFIED
     Route: 065
  3. IMACILLIN [Concomitant]
     Dosage: UNSPECIFIED
     Route: 065

REACTIONS (1)
  - Tubulointerstitial nephritis [Recovered/Resolved]
